FAERS Safety Report 24564698 (Version 1)
Quarter: 2024Q4

REPORT INFORMATION
  Report Type: Spontaneous
  Country: US (occurrence: US)
  Receive Date: 20241030
  Receipt Date: 20241030
  Transmission Date: 20250114
  Serious: Yes (Other)
  Sender: NOVARTIS
  Company Number: US-002147023-NVSC2024US210356

PATIENT
  Age: 9 Year

DRUGS (1)
  1. KYMRIAH [Suspect]
     Active Substance: TISAGENLECLEUCEL
     Indication: Acute lymphocytic leukaemia
     Dosage: UNK, ONCE/SINGLE (3.3E6 CAR TCELLS/KG)
     Route: 042
     Dates: start: 20240916, end: 20240916

REACTIONS (1)
  - Haemophagocytic lymphohistiocytosis [Unknown]
